FAERS Safety Report 19129881 (Version 1)
Quarter: 2021Q2

REPORT INFORMATION
  Report Type: Report from Study
  Country: None (occurrence: FR)
  Receive Date: 20210414
  Receipt Date: 20210414
  Transmission Date: 20210717
  Serious: Yes (Hospitalization)
  Sender: FDA-Public Use
  Company Number: FR-ABBVIE-21K-056-3852742-00

PATIENT
  Age: 54 Year
  Sex: Male

DRUGS (2)
  1. DUODOPA [Suspect]
     Active Substance: CARBIDOPA\LEVODOPA
  2. DUODOPA [Suspect]
     Active Substance: CARBIDOPA\LEVODOPA
     Indication: PARKINSON^S DISEASE
     Route: 050
     Dates: start: 202012

REACTIONS (5)
  - Confusional state [Unknown]
  - Loss of consciousness [Unknown]
  - Malaise [Unknown]
  - Dizziness [Unknown]
  - Suture insertion [Unknown]

NARRATIVE: CASE EVENT DATE: 20210407
